FAERS Safety Report 13946120 (Version 3)
Quarter: 2017Q3

REPORT INFORMATION
  Report Type: Spontaneous
  Country: US (occurrence: US)
  Receive Date: 20170907
  Receipt Date: 20170914
  Transmission Date: 20171128
  Serious: Yes (Hospitalization, Other)
  Sender: FDA-Public Use
  Company Number: US-ROCHE-1987848

PATIENT
  Age: 22 Year
  Sex: Male

DRUGS (1)
  1. RITUXAN [Suspect]
     Active Substance: RITUXIMAB
     Indication: FACTOR VIII DEFICIENCY
     Route: 065
     Dates: start: 2007

REACTIONS (7)
  - Extradural haematoma [Unknown]
  - Intentional product use issue [Unknown]
  - Arthritis infective [Not Recovered/Not Resolved]
  - Off label use [Unknown]
  - Subdural haematoma [Unknown]
  - Haemorrhage [Not Recovered/Not Resolved]
  - Haemarthrosis [Unknown]

NARRATIVE: CASE EVENT DATE: 2017
